FAERS Safety Report 20939703 (Version 1)
Quarter: 2022Q2

REPORT INFORMATION
  Report Type: Report from Study
  Country: US (occurrence: US)
  Receive Date: 20220609
  Receipt Date: 20220609
  Transmission Date: 20220721
  Serious: Yes (Other)
  Sender: FDA-Public Use
  Company Number: US-ABBVIE-22K-163-4426273-00

PATIENT
  Sex: Male

DRUGS (5)
  1. LUPRON [Suspect]
     Active Substance: LEUPROLIDE ACETATE
     Indication: Product used for unknown indication
     Route: 065
  2. MODERNA COVID-19 VACCINE [Concomitant]
     Active Substance: ELASOMERAN
     Indication: COVID-19 immunisation
     Dosage: MODERNA 1ST DOSE
     Route: 030
     Dates: start: 20210125, end: 20210125
  3. MODERNA COVID-19 VACCINE [Concomitant]
     Active Substance: ELASOMERAN
     Dosage: MODERNA 2ND DOSE
     Route: 030
     Dates: start: 20210223, end: 20210223
  4. MODERNA COVID-19 VACCINE [Concomitant]
     Active Substance: ELASOMERAN
     Dosage: MODERNA 3RD DOSE
     Route: 030
     Dates: start: 20210909, end: 20210909
  5. COVID-19 VACCINE [Concomitant]
     Indication: COVID-19 immunisation
     Dosage: 2ND BOOSTER
     Route: 030
     Dates: start: 20220404, end: 20220404

REACTIONS (9)
  - Prostate cancer [Unknown]
  - Cough [Recovered/Resolved]
  - Cryotherapy [Recovered/Resolved]
  - Rotator cuff syndrome [Recovered/Resolved]
  - Squamous cell carcinoma of skin [Unknown]
  - Coronary artery bypass [Recovered/Resolved]
  - Carotid artery disease [Recovered/Resolved]
  - Retinal tear [Unknown]
  - Cataract [Unknown]

NARRATIVE: CASE EVENT DATE: 20070101
